FAERS Safety Report 7699851-X (Version None)
Quarter: 2011Q3

REPORT INFORMATION
  Report Type: 
  Country: None (occurrence: None)
  Receive Date: 20110822
  Receipt Date: 20091216
  Transmission Date: 20111222
  Serious: No
  Sender: FDA-Public Use
  Company Number: 2009BI041255

PATIENT
  Sex: Female

DRUGS (1)
  1. TYSABRI [Suspect]
     Indication: MULTIPLE SCLEROSIS
     Route: 042
     Dates: start: 20090601, end: 20110324

REACTIONS (11)
  - SENSORY DISTURBANCE [None]
  - MULTIPLE SCLEROSIS [None]
  - ASTHENIA [None]
  - BALANCE DISORDER [None]
  - LOSS OF CONTROL OF LEGS [None]
  - HYPERVITAMINOSIS [None]
  - PERONEAL NERVE PALSY [None]
  - CENTRAL NERVOUS SYSTEM LESION [None]
  - BACK DISORDER [None]
  - CONSTIPATION [None]
  - DRUG INEFFECTIVE [None]
